FAERS Safety Report 9460460 (Version 1)
Quarter: 2013Q3

REPORT INFORMATION
  Report Type: Spontaneous
  Country: US (occurrence: US)
  Receive Date: 20130815
  Receipt Date: 20130815
  Transmission Date: 20140515
  Serious: Yes (Death, Hospitalization)
  Sender: FDA-Public Use
  Company Number: US-ACTELION-A-NJ2013-86913

PATIENT
  Age: 5 Month
  Sex: Male

DRUGS (1)
  1. TRACLEER [Suspect]
     Indication: PULMONARY ARTERIAL HYPERTENSION
     Dosage: UNK
     Route: 048
     Dates: end: 20130713

REACTIONS (5)
  - Neonatal respiratory failure [Fatal]
  - Pneumonia aspiration [Fatal]
  - Right ventricular failure [Fatal]
  - Pulmonary vein stenosis [Fatal]
  - Congenital diaphragmatic hernia [Fatal]
